FAERS Safety Report 21839920 (Version 1)
Quarter: 2023Q1

REPORT INFORMATION
  Report Type: Spontaneous
  Country: US (occurrence: US)
  Receive Date: 20230110
  Receipt Date: 20230110
  Transmission Date: 20230418
  Serious: No
  Sender: FDA-Public Use
  Company Number: US-AMGEN-USASP2022227808

PATIENT
  Sex: Female

DRUGS (3)
  1. OTEZLA [Suspect]
     Active Substance: APREMILAST
     Indication: Rheumatoid arthritis
     Route: 048
  2. CLOBETASOL PROPION [Concomitant]
     Dosage: UNK
     Route: 065
  3. DESONIDE [Concomitant]
     Active Substance: DESONIDE
     Route: 065

REACTIONS (2)
  - Off label use [Unknown]
  - Abdominal discomfort [Unknown]
